FAERS Safety Report 9175902 (Version 1)
Quarter: 2013Q1

REPORT INFORMATION
  Report Type: Spontaneous
  Country: IT (occurrence: IT)
  Receive Date: 20130320
  Receipt Date: 20130320
  Transmission Date: 20140127
  Serious: Yes (Other)
  Sender: FDA-Public Use
  Company Number: IT-ELI_LILLY_AND_COMPANY-IT201303005280

PATIENT
  Sex: Male

DRUGS (4)
  1. PEMETREXED [Suspect]
     Indication: PROSTATE CANCER METASTATIC
     Dosage: 500 MG/M2, OTHER
     Route: 042
  2. DEXAMETHASONE [Concomitant]
     Indication: PROPHYLAXIS
     Dosage: 4 MG, BID
     Route: 048
  3. FOLIC ACID [Concomitant]
     Dosage: 1 DF, QD
     Route: 048
  4. VITAMIN B12 [Concomitant]
     Dosage: 1000 UG, OTHER
     Route: 030

REACTIONS (1)
  - Panniculitis [Unknown]
